FAERS Safety Report 7628778-4 (Version None)
Quarter: 2011Q3

REPORT INFORMATION
  Report Type: 
  Country: None (occurrence: None)
  Receive Date: 20110722
  Receipt Date: 20110718
  Transmission Date: 20111222
  Serious: Yes (Other)
  Sender: FDA-Public Use
  Company Number: US-PFIZER INC-2011162923

PATIENT
  Sex: Female
  Weight: 65.76 kg

DRUGS (1)
  1. DETROL LA [Suspect]
     Indication: MICTURITION URGENCY
     Dosage: 4 MG, 1X/DAY
     Route: 048
     Dates: start: 20110501, end: 20110717

REACTIONS (2)
  - CATARACT [None]
  - WEIGHT INCREASED [None]
